FAERS Safety Report 6360828-8 (Version None)
Quarter: 2009Q3

REPORT INFORMATION
  Report Type: 
  Country: None (occurrence: None)
  Receive Date: 20090918
  Receipt Date: 20090909
  Transmission Date: 20100115
  Serious: Yes (Life-Threatening)
  Sender: FDA-Public Use
  Company Number: DE-ROCHE-647272

PATIENT
  Sex: Female

DRUGS (8)
  1. XELODA [Suspect]
     Dosage: FREQUENCY: DAILY
     Route: 048
     Dates: start: 20090605, end: 20090621
  2. XELODA [Suspect]
     Dosage: RESTARTED AT A LOWER DOSAGE
     Route: 048
  3. ASPIRIN [Concomitant]
     Dosage: DRUG REPORTED: ASS 100
  4. HYDROCHLOROTHIAZIDE [Concomitant]
     Dosage: DRUG REPORTED: HCT 125
  5. KARVEA [Concomitant]
     Dosage: DRUG: KARVEA 150
  6. SORBSAN [Concomitant]
     Dosage: DRUG REPORTED: SORBS 20
  7. METOPROLOL TARTRATE [Concomitant]
     Dosage: DRUG REPORTED: BELOC 20K
  8. PANTOZOL [Concomitant]
     Dosage: DRUG REPORTED: PANTOZOL 40

REACTIONS (1)
  - GASTROINTESTINAL INFLAMMATION [None]
